FAERS Safety Report 5310373-3 (Version None)
Quarter: 2007Q2

REPORT INFORMATION
  Report Type: 
  Country: None (occurrence: None)
  Receive Date: 20070427
  Receipt Date: 20070420
  Transmission Date: 20071010
  Serious: Yes (Death, Life-Threatening, Hospitalization)
  Sender: FDA-Public Use
  Company Number: FR-AMGEN-UK211666

PATIENT
  Age: 66 Year
  Sex: Female
  Weight: 72 kg

DRUGS (3)
  1. NEULASTA [Suspect]
     Indication: CHEMOTHERAPY
     Route: 058
     Dates: start: 20070205, end: 20070205
  2. CISPLATIN [Concomitant]
     Route: 065
     Dates: start: 20070129, end: 20070202
  3. ETOPOSIDE [Concomitant]
     Route: 065
     Dates: start: 20070129, end: 20070202

REACTIONS (7)
  - GENERAL PHYSICAL HEALTH DETERIORATION [None]
  - LUNG DISORDER [None]
  - NEUTROPENIA [None]
  - PANCYTOPENIA [None]
  - PYREXIA [None]
  - SEPTIC SHOCK [None]
  - VOMITING [None]
